FAERS Safety Report 17809728 (Version 2)
Quarter: 2020Q3

REPORT INFORMATION
  Report Type: Spontaneous
  Country: US (occurrence: US)
  Receive Date: 20200520
  Receipt Date: 20200724
  Transmission Date: 20201102
  Serious: Yes (Other)
  Sender: FDA-Public Use
  Company Number: US-TEVA-2020-US-1237100

PATIENT
  Age: 93 Year
  Sex: Male

DRUGS (7)
  1. ACYCLOVIR. [Concomitant]
     Active Substance: ACYCLOVIR
  2. LOSARTAN. [Suspect]
     Active Substance: LOSARTAN
     Route: 065
  3. POTASSIUM CHLORIDE. [Suspect]
     Active Substance: POTASSIUM CHLORIDE
     Route: 065
  4. CARVEDILOL. [Concomitant]
     Active Substance: CARVEDILOL
  5. TAMSULOSIN [Concomitant]
     Active Substance: TAMSULOSIN
  6. LOVASTATIN. [Concomitant]
     Active Substance: LOVASTATIN
  7. GABAPENTIN TEVA [Suspect]
     Active Substance: GABAPENTIN
     Dosage: TAKING THIS MEDICATION FOR THE LAST 2?3 YEARS
     Route: 065

REACTIONS (2)
  - Renal impairment [Not Recovered/Not Resolved]
  - Renal disorder [Not Recovered/Not Resolved]
